FAERS Safety Report 17195904 (Version 1)
Quarter: 2019Q4

REPORT INFORMATION
  Report Type: Report from Study
  Country: GB (occurrence: GB)
  Receive Date: 20191224
  Receipt Date: 20191224
  Transmission Date: 20200122
  Serious: Yes (Other)
  Sender: FDA-Public Use
  Company Number: GB-TEVA-2019-GB-1157896

PATIENT
  Sex: Female

DRUGS (1)
  1. COPAXONE [Suspect]
     Active Substance: GLATIRAMER ACETATE
     Indication: MULTIPLE SCLEROSIS
     Dosage: VIA PRE-FILLED SYRINGE
     Route: 058
     Dates: start: 201911, end: 2019

REACTIONS (18)
  - Injection site erythema [Recovered/Resolved]
  - Disturbance in attention [Recovered/Resolved]
  - Skin disorder [Recovered/Resolved]
  - Palpitations [Recovered/Resolved]
  - Hyperhidrosis [Recovered/Resolved]
  - Pigmentation disorder [Recovered/Resolved]
  - Injection site pain [Recovered/Resolved]
  - Dizziness [Recovered/Resolved]
  - Multiple sclerosis relapse [Recovered/Resolved]
  - Fall [Recovered/Resolved]
  - Injection related reaction [Recovered/Resolved]
  - Paralysis [Recovered/Resolved]
  - Skin burning sensation [Recovered/Resolved]
  - Adverse drug reaction [Recovered/Resolved]
  - Gait inability [Recovered/Resolved]
  - Dissociation [Recovered/Resolved]
  - Mass [Recovered/Resolved]
  - Hand deformity [Recovered/Resolved]

NARRATIVE: CASE EVENT DATE: 2019
